FAERS Safety Report 21932484 (Version 1)
Quarter: 2023Q1

REPORT INFORMATION
  Report Type: Spontaneous
  Country: US (occurrence: US)
  Receive Date: 20230131
  Receipt Date: 20230131
  Transmission Date: 20230418
  Serious: Yes (Hospitalization, Other)
  Sender: FDA-Public Use
  Company Number: US-FreseniusKabi-FK202301184

PATIENT
  Age: 68 Year
  Sex: Female

DRUGS (2)
  1. DOXORUBICIN [Suspect]
     Active Substance: DOXORUBICIN
     Indication: Invasive ductal breast carcinoma
     Dosage: FOURTH CYCLE OF CHEMOTHERAPY CUMULATIVE DOSE 472 MG/M2
  2. CYCLOPHOSPHAMIDE [Suspect]
     Active Substance: CYCLOPHOSPHAMIDE
     Indication: Invasive ductal breast carcinoma
     Dosage: FOURTH CYCLE OF CHEMOTHERAPY CUMULATIVE DOSE 4720 MG/M2

REACTIONS (2)
  - Device pacing issue [Recovered/Resolved]
  - Device electrical impedance issue [Recovered/Resolved]
